FAERS Safety Report 23451229 (Version 1)
Quarter: 2024Q1

REPORT INFORMATION
  Report Type: Report from Study
  Country: US (occurrence: US)
  Receive Date: 20240129
  Receipt Date: 20240129
  Transmission Date: 20240409
  Serious: No
  Sender: FDA-Public Use
  Company Number: US-AGIOS-2401US03617

PATIENT
  Sex: Female
  Weight: 81.4 kg

DRUGS (1)
  1. MITAPIVAT [Suspect]
     Active Substance: MITAPIVAT
     Indication: Pyruvate kinase deficiency anaemia
     Dosage: 20 MILLIGRAM, BID
     Route: 048
     Dates: start: 20231212

REACTIONS (4)
  - Back pain [Unknown]
  - Haemoglobin decreased [Unknown]
  - Hepatic function abnormal [Unknown]
  - Pain in extremity [Unknown]
